FAERS Safety Report 9458104 (Version 1)
Quarter: 2013Q3

REPORT INFORMATION
  Report Type: Spontaneous
  Country: FR (occurrence: FR)
  Receive Date: 20130814
  Receipt Date: 20130814
  Transmission Date: 20140515
  Serious: Yes (Disabling)
  Sender: FDA-Public Use
  Company Number: FR-BAYER-2013-097462

PATIENT
  Age: 81 Year
  Sex: Female

DRUGS (4)
  1. IZILOX [Suspect]
     Indication: SEVERE ACUTE RESPIRATORY SYNDROME
     Dosage: UNK
     Route: 048
     Dates: start: 20130525
  2. COAPROVEL [Concomitant]
     Indication: HYPERTENSION
     Route: 048
  3. LEVOTHYROX [Concomitant]
     Indication: HYPOTHYROIDISM
     Dosage: UNK
     Route: 048
  4. SYMBICORT TU [Concomitant]
     Indication: ASTHMA
     Dosage: UNK

REACTIONS (1)
  - Mydriasis [Not Recovered/Not Resolved]
